FAERS Safety Report 4552198-2 (Version None)
Quarter: 2004Q4

REPORT INFORMATION
  Report Type: 
  Country: None (occurrence: None)
  Receive Date: 20041217
  Receipt Date: 20040830
  Transmission Date: 20050328
  Serious: No
  Sender: FDA-Public Use
  Company Number: 2004-BP-06246BP

PATIENT
  Age: 66 Year
  Sex: Female

DRUGS (5)
  1. SPIRIVA [Suspect]
     Indication: CHRONIC OBSTRUCTIVE AIRWAYS DISEASE
     Dosage: 18 MCG (18 MCG),IH
     Dates: start: 20040601, end: 20040728
  2. FLOVENT [Concomitant]
  3. SINGULAIR [Concomitant]
  4. MIRALEX [Concomitant]
  5. LIBRIUM [Concomitant]

REACTIONS (8)
  - ABDOMINAL PAIN [None]
  - COUGH [None]
  - DRY MOUTH [None]
  - HEART RATE INCREASED [None]
  - INFLUENZA LIKE ILLNESS [None]
  - PAIN IN EXTREMITY [None]
  - SINUS DISORDER [None]
  - URINE FLOW DECREASED [None]
